FAERS Safety Report 8601933-2 (Version None)
Quarter: 2012Q3

REPORT INFORMATION
  Report Type: 
  Country: None (occurrence: None)
  Receive Date: 20120817
  Receipt Date: 20120531
  Transmission Date: 20120928
  Serious: No
  Sender: FDA-Public Use
  Company Number: US-BRISTOL-MYERS SQUIBB COMPANY-16655433

PATIENT
  Sex: Male

DRUGS (1)
  1. SPRYCEL [Suspect]
     Dates: start: 20120201

REACTIONS (1)
  - FATIGUE [None]
